FAERS Safety Report 8902385 (Version 4)
Quarter: 2013Q1

REPORT INFORMATION
  Report Type: Spontaneous
  Country: US (occurrence: US)
  Receive Date: 20121112
  Receipt Date: 20130208
  Transmission Date: 20140127
  Serious: Yes (Other)
  Sender: FDA-Public Use
  Company Number: US-PFIZER INC-2012280183

PATIENT
  Age: 51 Year
  Sex: Male

DRUGS (2)
  1. NEURONTIN [Suspect]
     Dosage: 300 MG, (1-2 DAILY)
     Route: 048
  2. PROTONIX [Suspect]
     Dosage: 40 MG, 1X/DAY
     Route: 048

REACTIONS (3)
  - Muir-Torre syndrome [Unknown]
  - Sebaceous carcinoma [Unknown]
  - Visual field defect [Unknown]
